FAERS Safety Report 7273232-5 (Version None)
Quarter: 2011Q1

REPORT INFORMATION
  Report Type: 
  Country: None (occurrence: None)
  Receive Date: 20110203
  Receipt Date: 20110125
  Transmission Date: 20110831
  Serious: Yes (Other)
  Sender: FDA-Public Use
  Company Number: AU-ELI_LILLY_AND_COMPANY-AU201011007716

PATIENT
  Age: 38 Year
  Sex: Female

DRUGS (5)
  1. ZYPREXA RELPREVV [Suspect]
     Dosage: 300 MG, UNKNOWN
     Route: 065
     Dates: start: 20101007
  2. ZYPREXA RELPREVV [Suspect]
     Dosage: 300 MG, UNKNOWN
     Route: 065
     Dates: start: 20101104
  3. ZYPREXA RELPREVV [Suspect]
     Dosage: 300 MG, UNKNOWN
     Route: 065
     Dates: start: 20101022
  4. ARIPIPRAZOLE [Concomitant]
     Dosage: 10 MG, AS NEEDED
     Route: 065
     Dates: start: 20101119, end: 20101130
  5. ZYPREXA RELPREVV [Suspect]
     Dosage: 405 MG, UNKNOWN
     Route: 065
     Dates: start: 20101119

REACTIONS (2)
  - NEUTROPHIL COUNT DECREASED [None]
  - WHITE BLOOD CELL COUNT DECREASED [None]
